FAERS Safety Report 9240173 (Version 1)
Quarter: 2013Q2

REPORT INFORMATION
  Report Type: Spontaneous
  Country: DE (occurrence: None)
  Receive Date: 20130417
  Receipt Date: 20130417
  Transmission Date: 20140414
  Serious: Yes (Congenital Anomaly, Other)
  Sender: FDA-Public Use
  Company Number: E2B-00000735

PATIENT
  Sex: Male
  Weight: 3.4 kg

DRUGS (3)
  1. LAMOTRIGINE [Suspect]
     Indication: EPILEPSY
     Dosage: 275 (MG/D(150-0-125)) (1 D), TRANSPLACENTAL
     Route: 064
  2. VALPROIC ACID [Suspect]
     Indication: EPILEPSY
     Dosage: 600 MG (300MG, 2 IN 1 D), TRANSPLACENTAL
     Route: 064
  3. FOLIC ACID (FOLIC ACID) [Concomitant]

REACTIONS (4)
  - Maternal drugs affecting foetus [None]
  - Aplasia cutis congenita [None]
  - Transient tachypnoea of the newborn [None]
  - Conjunctivitis bacterial [None]
